FAERS Safety Report 8177538-7 (Version None)
Quarter: 2012Q1

REPORT INFORMATION
  Report Type: 
  Country: None (occurrence: None)
  Receive Date: 20120301
  Receipt Date: 20120224
  Transmission Date: 20120608
  Serious: No
  Sender: FDA-Public Use
  Company Number: US-TEVA-325050USA

PATIENT
  Sex: Male

DRUGS (2)
  1. PROAIR HFA [Suspect]
     Indication: ASTHMA
     Route: 055
     Dates: end: 20110901
  2. PROAIR HFA [Suspect]
     Indication: HYPERSENSITIVITY

REACTIONS (2)
  - RESPIRATORY DISORDER [None]
  - GASTROINTESTINAL DISORDER [None]
